FAERS Safety Report 9432872 (Version 1)
Quarter: 2013Q3

REPORT INFORMATION
  Report Type: Report from Study
  Country: PK (occurrence: PK)
  Receive Date: 20130731
  Receipt Date: 20130731
  Transmission Date: 20140515
  Serious: Yes (Death)
  Sender: FDA-Public Use
  Company Number: PHHY2013PK081827

PATIENT
  Age: 74 Year
  Sex: Male

DRUGS (2)
  1. ACLASTA [Suspect]
     Indication: OSTEOPOROSIS
     Dosage: ONCE A YEAR
     Route: 042
     Dates: start: 20120803
  2. CALCIUM [Concomitant]
     Dosage: ONCE DAILY
     Route: 048
     Dates: start: 20120801

REACTIONS (1)
  - Death [Fatal]
